FAERS Safety Report 9648758 (Version 2)
Quarter: 2013Q4

REPORT INFORMATION
  Report Type: Spontaneous
  Country: US (occurrence: US)
  Receive Date: 20131028
  Receipt Date: 20131101
  Transmission Date: 20140711
  Serious: No
  Sender: FDA-Public Use
  Company Number: US-009507513-1310USA008844

PATIENT
  Age: 31 Year
  Sex: Female
  Weight: 77.98 kg

DRUGS (3)
  1. NUVARING [Suspect]
     Indication: CONTRACEPTION
     Dosage: 3 WEEKS, 1 WEEK OUT, 1 RING
     Route: 067
     Dates: start: 20131015
  2. BACLOFEN [Concomitant]
  3. TRAMADOL HYDROCHLORIDE [Concomitant]

REACTIONS (4)
  - Nausea [Unknown]
  - Vomiting [Unknown]
  - Abdominal pain lower [Unknown]
  - Headache [Unknown]
